FAERS Safety Report 19474320 (Version 1)
Quarter: 2021Q2

REPORT INFORMATION
  Report Type: Report from Study
  Country: DE (occurrence: DE)
  Receive Date: 20210629
  Receipt Date: 20210629
  Transmission Date: 20210717
  Serious: Yes (Other)
  Sender: FDA-Public Use
  Company Number: NVSC2021DE140975

PATIENT
  Age: 62 Year
  Sex: Female

DRUGS (1)
  1. METFORMIN [Suspect]
     Active Substance: METFORMIN HYDROCHLORIDE
     Indication: PRODUCT USED FOR UNKNOWN INDICATION
     Dosage: UNK
     Route: 065

REACTIONS (8)
  - Visual impairment [Unknown]
  - Hypoacusis [Unknown]
  - Hypoglycaemia [Unknown]
  - Obesity [Unknown]
  - Blood glucose abnormal [Unknown]
  - Retinopathy [Unknown]
  - Arthralgia [Unknown]
  - Hyperglycaemia [Unknown]
